FAERS Safety Report 17363080 (Version 3)
Quarter: 2020Q2

REPORT INFORMATION
  Report Type: Report from Study
  Country: MY (occurrence: MY)
  Receive Date: 20200203
  Receipt Date: 20200405
  Transmission Date: 20200713
  Serious: Yes (Hospitalization)
  Sender: FDA-Public Use
  Company Number: NVSC2020MY016963

PATIENT
  Age: 61 Year
  Sex: Male
  Weight: 51.1 kg

DRUGS (17)
  1. COMPARATOR PEMBROLIZUMAB [Suspect]
     Active Substance: PEMBROLIZUMAB
     Dosage: 200 MG, Q3W
     Route: 042
     Dates: start: 20191204
  2. FERROUS SULFATE. [Concomitant]
     Active Substance: FERROUS SULFATE
     Indication: MINERAL SUPPLEMENTATION
     Dosage: UNK
     Route: 065
     Dates: start: 20191031
  3. CANAKINUMAB. [Suspect]
     Active Substance: CANAKINUMAB
     Indication: NON-SMALL CELL LUNG CANCER
     Dosage: CODE NOT BROKEN
     Route: 058
     Dates: start: 20191031, end: 20191031
  4. CANAKINUMAB. [Suspect]
     Active Substance: CANAKINUMAB
     Dosage: CODE NOT BROKEN
     Route: 058
     Dates: start: 20191204
  5. MULTI VITAMIN [Concomitant]
     Active Substance: VITAMINS
     Indication: VITAMIN SUPPLEMENTATION
     Dosage: UNK
     Route: 065
     Dates: start: 20191031
  6. CLARITIN [Concomitant]
     Active Substance: LORATADINE
     Indication: PRURITUS
     Dosage: UNK
     Route: 065
     Dates: start: 20200106
  7. PEMETREXED COMP-PEME+CSOLINF [Suspect]
     Active Substance: PEMETREXED
     Indication: NON-SMALL CELL LUNG CANCER
     Dosage: 500 MG, Q3W
     Route: 042
     Dates: start: 20191031, end: 20191031
  8. COMPARATOR CISPLATIN [Suspect]
     Active Substance: CISPLATIN
     Indication: NON-SMALL CELL LUNG CANCER
     Dosage: UNK
     Route: 042
  9. MANNITOL. [Concomitant]
     Active Substance: MANNITOL
     Indication: PREMEDICATION
     Dosage: UNK
     Route: 065
     Dates: start: 20191031
  10. PEMETREXED COMP-PEME+CSOLINF [Suspect]
     Active Substance: PEMETREXED
     Dosage: 500 MG, Q3W
     Route: 042
     Dates: start: 20191204
  11. COMPARATOR PEMBROLIZUMAB [Suspect]
     Active Substance: PEMBROLIZUMAB
     Indication: NON-SMALL CELL LUNG CANCER
     Dosage: 200 MG, Q3W
     Route: 042
     Dates: start: 20191031, end: 20191031
  12. POTASSIUM CHLORIDE. [Concomitant]
     Active Substance: POTASSIUM CHLORIDE
     Indication: PREMEDICATION
     Dosage: UNK
     Route: 065
     Dates: start: 20191031
  13. GRANISETRON [Concomitant]
     Active Substance: GRANISETRON
     Indication: PREMEDICATION
     Dosage: UNK
     Route: 065
     Dates: start: 20191031
  14. CARBOPLATIN COMP-CAB+CSOLINF [Suspect]
     Active Substance: CARBOPLATIN
     Indication: NON-SMALL CELL LUNG CANCER
     Dosage: 359 MG, Q3W
     Route: 042
     Dates: start: 20191031, end: 20191031
  15. NORMAL SALINE [Concomitant]
     Active Substance: SODIUM CHLORIDE
     Indication: PREMEDICATION
     Dosage: UNK
     Route: 065
     Dates: start: 20191031
  16. MAGNESIUM [Concomitant]
     Active Substance: MAGNESIUM
     Indication: PREMEDICATION
     Dosage: UNK
     Route: 065
     Dates: start: 20191031
  17. CARBOPLATIN COMP-CAB+CSOLINF [Suspect]
     Active Substance: CARBOPLATIN
     Dosage: 359 MG, Q3W
     Route: 042
     Dates: start: 20191204

REACTIONS (1)
  - Pneumonia [Not Recovered/Not Resolved]

NARRATIVE: CASE EVENT DATE: 20200114
